FAERS Safety Report 7593942-X (Version None)
Quarter: 2011Q3

REPORT INFORMATION
  Report Type: 
  Country: None (occurrence: None)
  Receive Date: 20110706
  Receipt Date: 20110627
  Transmission Date: 20111222
  Serious: Yes (Hospitalization)
  Sender: FDA-Public Use
  Company Number: DK-ASTRAZENECA-2011SE38933

PATIENT
  Age: 55 Year
  Sex: Female

DRUGS (2)
  1. ATACAND [Suspect]
     Route: 048
  2. ATACAND [Suspect]
     Indication: HYPERTENSION
     Route: 048
     Dates: start: 20060710, end: 20100301

REACTIONS (7)
  - ABDOMINAL PAIN UPPER [None]
  - PRURITUS [None]
  - HEPATITIS TOXIC [None]
  - DECREASED APPETITE [None]
  - DYSPEPSIA [None]
  - URINE COLOUR ABNORMAL [None]
  - BIOPSY LIVER [None]
